FAERS Safety Report 6051892-4 (Version None)
Quarter: 2009Q1

REPORT INFORMATION
  Report Type: 
  Country: None (occurrence: None)
  Receive Date: 20090121
  Receipt Date: 20090121
  Transmission Date: 20090719
  Serious: Yes (Disabling)
  Sender: FDA-Public Use
  Company Number: None

PATIENT
  Age: 65 Year
  Sex: Female
  Weight: 106.5953 kg

DRUGS (1)
  1. AZITHROMYCIN [Suspect]
     Indication: INFECTION
     Dosage: 250 MG 500MG START 250MG OD PO
     Route: 048
     Dates: start: 20081225, end: 20081229

REACTIONS (5)
  - DIZZINESS [None]
  - GAIT DISTURBANCE [None]
  - IMPAIRED DRIVING ABILITY [None]
  - NAUSEA [None]
  - PRODUCT QUALITY ISSUE [None]
